FAERS Safety Report 5317655-X (Version None)
Quarter: 2007Q2

REPORT INFORMATION
  Report Type: 
  Country: None (occurrence: None)
  Receive Date: 20070507
  Receipt Date: 20070427
  Transmission Date: 20071010
  Serious: Yes (Other)
  Sender: FDA-Public Use
  Company Number: PHEH2007US04586

PATIENT
  Age: 57 Year
  Sex: Male

DRUGS (1)
  1. ZELNORM [Suspect]
     Indication: IRRITABLE BOWEL SYNDROME
     Dosage: UNK, BID
     Route: 048
     Dates: end: 20070406

REACTIONS (3)
  - CARDIOMEGALY [None]
  - CHEST PAIN [None]
  - RESPIRATORY TRACT CONGESTION [None]
